FAERS Safety Report 18460564 (Version 1)
Quarter: 2020Q4

REPORT INFORMATION
  Report Type: Other
  Country: CN (occurrence: CN)
  Receive Date: 20201104
  Receipt Date: 20201104
  Transmission Date: 20210114
  Serious: Yes (Other)
  Sender: FDA-Public Use
  Company Number: CN-ROCHE-2704682

PATIENT

DRUGS (8)
  1. HEPARIN [Concomitant]
     Active Substance: HEPARIN SODIUM
     Dosage: AT A DOSE OF 2000 IU IN 2 ML OF 0.9% SODIUM CHLORIDE.
  2. LEUCOVORIN CALCIUM. [Suspect]
     Active Substance: LEUCOVORIN CALCIUM
     Indication: GALLBLADDER CANCER
     Dosage: FOR 2 H
     Route: 041
  3. CAPECITABINE. [Suspect]
     Active Substance: CAPECITABINE
     Indication: GALLBLADDER CANCER
     Route: 048
  4. GEMCITABINE. [Suspect]
     Active Substance: GEMCITABINE
     Indication: GALLBLADDER CANCER
     Route: 065
  5. OXALIPLATIN. [Suspect]
     Active Substance: OXALIPLATIN
     Indication: GALLBLADDER CANCER
     Dosage: FOR 2 HOUR, ON DAYS 1-3 EVERY 3-4 WEEKS
     Route: 042
  6. 5-FLUOROURACIL [Suspect]
     Active Substance: FLUOROURACIL
     Indication: GALLBLADDER CANCER
     Dosage: FOR 22 HOURS, ON DAYS 1-3 EVERY 3-4 WEEKS
     Route: 042
  7. NEDAPLATIN [Suspect]
     Active Substance: NEDAPLATIN
     Indication: GALLBLADDER CANCER
     Route: 065
  8. TS-1 [Suspect]
     Active Substance: GIMERACIL\OTERACIL\TEGAFUR
     Indication: GALLBLADDER CANCER
     Route: 048

REACTIONS (4)
  - Gastrointestinal disorder [Unknown]
  - Abdominal pain [Unknown]
  - Hepatic function abnormal [Unknown]
  - Toxicity to various agents [Unknown]
